FAERS Safety Report 7333306-7 (Version None)
Quarter: 2011Q1

REPORT INFORMATION
  Report Type: 
  Country: None (occurrence: None)
  Receive Date: 20110224
  Receipt Date: 20110208
  Transmission Date: 20110831
  Serious: Yes (Hospitalization)
  Sender: FDA-Public Use
  Company Number: DSA_44946_2011

PATIENT
  Age: 91 Year
  Sex: Female

DRUGS (25)
  1. BETNOVATE [Concomitant]
  2. ARTELAC /00445101/ [Concomitant]
  3. OXYCONTIN [Concomitant]
  4. ESTRIOL [Concomitant]
  5. UREA [Concomitant]
  6. CANODERM [Concomitant]
  7. ACETAMINOPHEN [Concomitant]
  8. TROMBYL [Concomitant]
  9. BETNOVATE MED CHINOFORM [Concomitant]
  10. COCILLANA-ETYFIN /01329201/ [Concomitant]
  11. ATARAX /00595201/ [Concomitant]
  12. BEHEPAN [Concomitant]
  13. XERODENT /06365801/ [Concomitant]
  14. NITROMEX [Concomitant]
  15. OMEPRAZOLE [Concomitant]
  16. LAXOBERAL [Concomitant]
  17. METOPROLOL (METOPROLOL) [Suspect]
     Indication: HYPERTENSION
     Dosage: 200 MG QD ORAL
     Route: 048
     Dates: end: 20100901
  18. AMLODIPINE [Suspect]
     Indication: PRODUCT USED FOR UNKNOWN INDICATION
     Dosage: DF
     Dates: end: 20100901
  19. IMDUR [Suspect]
     Indication: PRODUCT USED FOR UNKNOWN INDICATION
     Dosage: DF
     Dates: end: 20100901
  20. OFTAGEL [Concomitant]
  21. ENALAPRIL MALEATE [Suspect]
     Indication: CARDIAC FAILURE
     Dosage: 7.5 MG QD ORAL
     Route: 048
     Dates: end: 20100901
  22. DUROFERON [Concomitant]
  23. IMPUGAN [Concomitant]
  24. MOVICOL /01749801/ [Concomitant]
  25. FUNGORAL [Concomitant]

REACTIONS (5)
  - HYPOTENSION [None]
  - CARDIAC FAILURE [None]
  - BRADYCARDIA [None]
  - CONDITION AGGRAVATED [None]
  - ATRIAL FIBRILLATION [None]
